FAERS Safety Report 9552905 (Version 1)
Quarter: 2013Q3

REPORT INFORMATION
  Report Type: Spontaneous
  Country: US (occurrence: US)
  Receive Date: 20130925
  Receipt Date: 20130925
  Transmission Date: 20140515
  Serious: No
  Sender: FDA-Public Use
  Company Number: US-PURDUE-USA-2012-0090660

PATIENT
  Sex: Male

DRUGS (2)
  1. RYZOLT [Suspect]
     Indication: ANALGESIC THERAPY
     Dosage: 300 MG, UNK
  2. HYDROMORPHONE HCL (SIMILAR TO 19-892) [Concomitant]
     Indication: ANALGESIC THERAPY
     Dosage: UNK

REACTIONS (1)
  - Drug effect decreased [Unknown]
